FAERS Safety Report 17074236 (Version 4)
Quarter: 2020Q1

REPORT INFORMATION
  Report Type: Spontaneous
  Country: TR (occurrence: TR)
  Receive Date: 20191126
  Receipt Date: 20200109
  Transmission Date: 20200409
  Serious: Yes (Hospitalization)
  Sender: FDA-Public Use
  Company Number: TR-SA-2019SA320761

PATIENT
  Age: 75 Year
  Sex: Female
  Weight: 70 kg

DRUGS (2)
  1. LANTUS SOLOSTAR [Suspect]
     Active Substance: INSULIN GLARGINE
     Indication: DIABETES MELLITUS
     Dosage: UNK, BID
     Route: 058
  2. LANTUS SOLOSTAR [Suspect]
     Active Substance: INSULIN GLARGINE
     Dosage: 5 U, TID
     Route: 058

REACTIONS (10)
  - Infection [Recovered/Resolved]
  - Rash [Recovered/Resolved]
  - Pyrexia [Recovered/Resolved]
  - Skin exfoliation [Recovered/Resolved]
  - Burning sensation [Recovered/Resolved]
  - Swelling [Recovered/Resolved]
  - Rash [Recovered/Resolved]
  - Weight decreased [Recovered/Resolved]
  - Off label use [Unknown]
  - Contusion [Recovered/Resolved]

NARRATIVE: CASE EVENT DATE: 2018
